FAERS Safety Report 25186317 (Version 2)
Quarter: 2025Q2

REPORT INFORMATION
  Report Type: Spontaneous
  Country: JP (occurrence: JP)
  Receive Date: 20250410
  Receipt Date: 20250619
  Transmission Date: 20250717
  Serious: Yes (Other)
  Sender: NOVARTIS
  Company Number: JP-002147023-NVSJ2025JP004218

PATIENT
  Age: 77 Year
  Sex: Female

DRUGS (3)
  1. ENTRESTO [Suspect]
     Active Substance: SACUBITRIL\VALSARTAN
     Indication: Hypertension
     Route: 048
     Dates: start: 20250325, end: 20250330
  2. ADALAT [Concomitant]
     Active Substance: NIFEDIPINE
     Indication: Hypertension
     Route: 048
  3. AMLODIPINE [Concomitant]
     Active Substance: AMLODIPINE BESYLATE
     Indication: Product used for unknown indication
     Route: 048
     Dates: start: 20250325

REACTIONS (1)
  - Blood pressure decreased [Recovered/Resolved]
